FAERS Safety Report 20974283 (Version 3)
Quarter: 2022Q3

REPORT INFORMATION
  Report Type: Spontaneous
  Country: US (occurrence: US)
  Receive Date: 20220617
  Receipt Date: 20220714
  Transmission Date: 20221027
  Serious: Yes (Hospitalization, Other)
  Sender: FDA-Public Use
  Company Number: US-SA-SAC20220616000305

PATIENT
  Age: 54 Year
  Sex: Female

DRUGS (8)
  1. DUPIXENT [Suspect]
     Active Substance: DUPILUMAB
     Indication: Dermatitis atopic
     Dosage: 300 MG, QOW
     Route: 058
     Dates: start: 20210914
  2. FLOVENT [Concomitant]
     Active Substance: FLUTICASONE PROPIONATE
  3. LORATADINE [Concomitant]
     Active Substance: LORATADINE
  4. PHENTERMINE [Concomitant]
     Active Substance: PHENTERMINE
  5. PROAIR HFA [Concomitant]
     Active Substance: ALBUTEROL SULFATE
  6. VENTOLIN [Concomitant]
     Active Substance: ALBUTEROL SULFATE
  7. DOXYCYCLINE HYCLATE [Concomitant]
     Active Substance: DOXYCYCLINE HYCLATE
  8. HYDROCHLOROTHIAZIDE [Concomitant]
     Active Substance: HYDROCHLOROTHIAZIDE

REACTIONS (12)
  - Infection [Unknown]
  - Cellulitis [Unknown]
  - Discomfort [Unknown]
  - Sleep disorder [Unknown]
  - COVID-19 [Unknown]
  - Eye irritation [Unknown]
  - Asthma [Unknown]
  - Dyspnoea [Unknown]
  - Impaired quality of life [Unknown]
  - Oropharyngeal pain [Unknown]
  - Dermatitis atopic [Unknown]
  - Rash [Unknown]
